FAERS Safety Report 17177588 (Version 2)
Quarter: 2020Q1

REPORT INFORMATION
  Report Type: Spontaneous
  Country: JP (occurrence: JP)
  Receive Date: 20191219
  Receipt Date: 20200204
  Transmission Date: 20200409
  Serious: Yes (Hospitalization, Other)
  Sender: FDA-Public Use
  Company Number: JP-ASTELLAS-2019JP029038

PATIENT
  Age: 8 Year
  Sex: Female
  Weight: 30 kg

DRUGS (10)
  1. TAZOBACTAM SODIUM AND PIPERACILLIN SODIUM [Concomitant]
     Active Substance: PIPERACILLIN SODIUM\TAZOBACTAM SODIUM
     Indication: PERITONITIS BACTERIAL
     Dosage: UNK UNK, UNKNOWN FREQ.
     Route: 065
  2. MEROPENEM. [Concomitant]
     Active Substance: MEROPENEM
     Dosage: 120 MG/KG/DAY, EVERY 8 HOURS (60-MINUTE INFUSION)
     Route: 065
  3. CEFOTAXIME SODIUM [Concomitant]
     Active Substance: CEFOTAXIME SODIUM
     Indication: ANTIBIOTIC PROPHYLAXIS
     Dosage: UNK UNK, UNKNOWN FREQ.
     Route: 065
  4. GENTAMICIN. [Concomitant]
     Active Substance: GENTAMICIN
     Indication: ANTIBIOTIC THERAPY
     Dosage: 5 MG/KG/D, EVERY 24 HOURS
     Route: 065
  5. TACROLIMUS. [Suspect]
     Active Substance: TACROLIMUS
     Indication: IMMUNOSUPPRESSION
     Dosage: UNK UNK, UNKNOWN FREQ.
     Route: 065
  6. METHYLPREDNISOLONE. [Concomitant]
     Active Substance: METHYLPREDNISOLONE
     Indication: IMMUNOSUPPRESSION
     Dosage: UNK UNK, UNKNOWN FREQ.
     Route: 065
  7. AMPICILLIN [Concomitant]
     Active Substance: AMPICILLIN
     Indication: ANTIBIOTIC PROPHYLAXIS
     Dosage: UNK UNK, UNKNOWN FREQ.
     Route: 065
  8. MEROPENEM. [Concomitant]
     Active Substance: MEROPENEM
     Dosage: 120 MG/KG/DAY, EVERY 8 HOURS (60-MINUTE INFUSION)
     Route: 065
  9. MEROPENEM. [Concomitant]
     Active Substance: MEROPENEM
     Indication: PERITONITIS BACTERIAL
     Dosage: 60 MG/KG/DAY, UNKNOWN FREQ.
     Route: 065
  10. MEROPENEM. [Concomitant]
     Active Substance: MEROPENEM
     Dosage: 120 MG/KG/DAY, EVERY 8 HOURS
     Route: 065

REACTIONS (2)
  - Peritonitis bacterial [Recovered/Resolved]
  - Pathogen resistance [Recovered/Resolved]
